FAERS Safety Report 10273072 (Version 1)
Quarter: 2014Q3

REPORT INFORMATION
  Report Type: Spontaneous
  Country: BR (occurrence: BR)
  Receive Date: 20140702
  Receipt Date: 20140702
  Transmission Date: 20150326
  Serious: Yes (Other)
  Sender: FDA-Public Use
  Company Number: PHHY2014BR080453

PATIENT
  Age: 72 Year
  Sex: Female

DRUGS (6)
  1. ALOIS [Concomitant]
     Active Substance: MEMANTINE
     Dosage: 10 MG, BID
     Dates: start: 20100506
  2. EXELON PATCH [Suspect]
     Active Substance: RIVASTIGMINE
     Dosage: 4.6 MG, QD (ONE PATCH 5 A DAY)
     Route: 062
     Dates: start: 20100915, end: 20110511
  3. OMEGA 3 [Concomitant]
     Active Substance: OMEGA-3 FATTY ACIDS
     Dosage: 2 DF, QD
     Dates: start: 20100506
  4. TOCOPHEROL [Concomitant]
     Active Substance: TOCOPHEROL
     Dosage: 1 DF, QHS
     Dates: start: 20100506
  5. VITAMIN B12 [Concomitant]
     Active Substance: CYANOCOBALAMIN
     Dosage: 1 DF, QD
     Route: 060
     Dates: start: 20101117, end: 20110120
  6. PROCIMAX [Concomitant]
     Active Substance: CITALOPRAM HYDROBROMIDE
     Dosage: UNK UKN, UNK

REACTIONS (12)
  - Amnesia [Unknown]
  - Decreased interest [Unknown]
  - Mental impairment [Unknown]
  - Emotional distress [Unknown]
  - Nervousness [Unknown]
  - Psychomotor hyperactivity [Unknown]
  - Ischaemia [Unknown]
  - Hypoxia [Unknown]
  - Disturbance in attention [Unknown]
  - Memory impairment [Unknown]
  - Malaise [Unknown]
  - Aggression [Unknown]
